FAERS Safety Report 9242280 (Version 1)
Quarter: 2013Q2

REPORT INFORMATION
  Report Type: Spontaneous
  Country: NZ (occurrence: NZ)
  Receive Date: 20130419
  Receipt Date: 20130419
  Transmission Date: 20140414
  Serious: Yes (Other)
  Sender: FDA-Public Use
  Company Number: NZ-JNJFOC-20130405720

PATIENT
  Sex: Female

DRUGS (3)
  1. BENADRYL PE DRY COUGH AND NASAL CONGESTION [Suspect]
     Indication: NASAL OBSTRUCTION
     Route: 065
  2. BENADRYL PE DRY COUGH AND NASAL CONGESTION [Suspect]
     Indication: RHINORRHOEA
     Route: 065
  3. BENADRYL PE DRY COUGH AND NASAL CONGESTION [Suspect]
     Indication: COUGH
     Route: 065

REACTIONS (2)
  - Anaphylactic reaction [Unknown]
  - Product quality issue [None]
